FAERS Safety Report 8622974-5 (Version None)
Quarter: 2012Q3

REPORT INFORMATION
  Report Type: 
  Country: None (occurrence: None)
  Receive Date: 20120827
  Receipt Date: 20120823
  Transmission Date: 20120928
  Serious: Yes (Death, Other)
  Sender: FDA-Public Use
  Company Number: PHHY2012BR073274

PATIENT
  Sex: Male
  Weight: 48 kg

DRUGS (1)
  1. FORMOTEROL FUMARATE [Suspect]
     Indication: EMPHYSEMA
     Dosage: 1 DF, (1 INHALATION OF EACH TREATMENT TWICE DAILY)

REACTIONS (5)
  - FEMUR FRACTURE [None]
  - INSPIRATORY CAPACITY DECREASED [None]
  - BLADDER CANCER [None]
  - EMPHYSEMA [None]
  - BLOOD URINE PRESENT [None]
